FAERS Safety Report 11700550 (Version 1)
Quarter: 2015Q4

REPORT INFORMATION
  Report Type: Spontaneous
  Country: US (occurrence: None)
  Receive Date: 20151104
  Receipt Date: 20151104
  Transmission Date: 20160304
  Serious: Yes (Hospitalization, Disabling)
  Sender: FDA-Public Use
  Company Number: None

PATIENT
  Age: 52 Year
  Sex: Male
  Weight: 77.11 kg

DRUGS (3)
  1. RESPEREDOL [Concomitant]
  2. BENZOTROPINE [Concomitant]
     Active Substance: BENZTROPINE
  3. HALDOL [Suspect]
     Active Substance: HALOPERIDOL
     Indication: SCHIZOPHRENIA
     Dosage: 6 PILLS ONCE DAILY
     Route: 048
     Dates: start: 20150414, end: 20150429

REACTIONS (1)
  - Schizophrenia [None]

NARRATIVE: CASE EVENT DATE: 20150417
